FAERS Safety Report 23068366 (Version 1)
Quarter: 2023Q4

REPORT INFORMATION
  Report Type: Spontaneous
  Country: US (occurrence: None)
  Receive Date: 20231013
  Receipt Date: 20231013
  Transmission Date: 20240110
  Serious: Yes (Other)
  Sender: FDA-Public Use
  Company Number: None

PATIENT
  Age: 48 Year
  Sex: Male
  Weight: 69.75 kg

DRUGS (1)
  1. .DELTA.9-TETRAHYDROCANNABINOL ACETATE\CANNABIDIOL\HERBALS [Suspect]
     Active Substance: .DELTA.9-TETRAHYDROCANNABINOL ACETATE\CANNABIDIOL\HERBALS
     Indication: Anxiety
     Dates: start: 20200301, end: 20230404

REACTIONS (5)
  - Drug ineffective [None]
  - Fear [None]
  - Recalled product administered [None]
  - Product label on wrong product [None]
  - Adverse drug reaction [None]

NARRATIVE: CASE EVENT DATE: 20230404
